FAERS Safety Report 15608457 (Version 1)
Quarter: 2018Q4

REPORT INFORMATION
  Report Type: Spontaneous
  Country: US (occurrence: US)
  Receive Date: 20181107
  Receipt Date: 20181107
  Transmission Date: 20190205
  Serious: No
  Sender: FDA-Public Use
  Company Number: None

PATIENT
  Age: 47 Year
  Sex: Female

DRUGS (1)
  1. FERUMOXYTOL [Suspect]
     Active Substance: FERUMOXYTOL NON-STOICHIOMETRIC MAGNETITE
     Indication: IRON DEFICIENCY ANAEMIA
     Route: 042
     Dates: start: 20181023, end: 20181023

REACTIONS (5)
  - Anaphylactic reaction [None]
  - Hypersensitivity [None]
  - Infusion related reaction [None]
  - Panic attack [None]
  - Hypertension [None]

NARRATIVE: CASE EVENT DATE: 20181023
